FAERS Safety Report 7572348-3 (Version None)
Quarter: 2011Q2

REPORT INFORMATION
  Report Type: 
  Country: None (occurrence: None)
  Receive Date: 20110624
  Receipt Date: 20110620
  Transmission Date: 20111010
  Serious: Yes (Life-Threatening, Hospitalization)
  Sender: FDA-Public Use
  Company Number: PHHY2011US54050

PATIENT
  Sex: Female

DRUGS (8)
  1. AMLODIPINE [Concomitant]
  2. RECLAST [Suspect]
     Indication: OSTEOPOROSIS
     Dosage: 5 MG/ 100ML, ONCE YEARLY
     Route: 042
     Dates: start: 20110601
  3. PRILOSEC [Concomitant]
  4. LOPRESSOR [Concomitant]
  5. GLUCOVANCE [Concomitant]
  6. ASPIRIN [Concomitant]
  7. CARDURA [Concomitant]
  8. LASIX [Concomitant]

REACTIONS (3)
  - BLOOD CREATINE INCREASED [None]
  - CONFUSIONAL STATE [None]
  - RENAL FAILURE ACUTE [None]
